FAERS Safety Report 25669837 (Version 1)
Quarter: 2025Q3

REPORT INFORMATION
  Report Type: Report from Study
  Country: US (occurrence: US)
  Receive Date: 20250812
  Receipt Date: 20250812
  Transmission Date: 20251021
  Serious: Yes (Hospitalization)
  Sender: MYLAN
  Company Number: US-MYLANLABS-2025M1067500

PATIENT
  Sex: Male

DRUGS (2)
  1. GEMCITABINE [Suspect]
     Active Substance: GEMCITABINE
     Indication: Burkitt^s lymphoma recurrent
  2. OXALIPLATIN [Suspect]
     Active Substance: OXALIPLATIN
     Indication: Burkitt^s lymphoma recurrent

REACTIONS (2)
  - Therapy non-responder [Unknown]
  - Off label use [Unknown]
